FAERS Safety Report 21591908 (Version 2)
Quarter: 2022Q4

REPORT INFORMATION
  Report Type: Spontaneous
  Country: IN (occurrence: IN)
  Receive Date: 20221114
  Receipt Date: 20221115
  Transmission Date: 20230112
  Serious: Yes (Other)
  Sender: FDA-Public Use
  Company Number: IN-PFIZER INC-PV202200098883

PATIENT
  Sex: Male

DRUGS (3)
  1. AVIBACTAM SODIUM\CEFTAZIDIME [Suspect]
     Active Substance: AVIBACTAM SODIUM\CEFTAZIDIME
     Indication: Product used for unknown indication
     Dosage: 1.25 G, 3X/DAY
     Route: 042
     Dates: start: 20221026
  2. POSACONAZOLE [Concomitant]
     Active Substance: POSACONAZOLE
     Dosage: UNK
  3. COLISTIN [Concomitant]
     Active Substance: COLISTIN

REACTIONS (3)
  - Pyrexia [Unknown]
  - Myoclonus [Unknown]
  - Off label use [Unknown]

NARRATIVE: CASE EVENT DATE: 20221026
